FAERS Safety Report 4616940-4 (Version None)
Quarter: 2005Q1

REPORT INFORMATION
  Report Type: 
  Country: None (occurrence: None)
  Receive Date: 20050321
  Receipt Date: 20050310
  Transmission Date: 20050727
  Serious: Yes (Hospitalization, Other)
  Sender: FDA-Public Use
  Company Number: 2004090620

PATIENT
  Age: 53 Year
  Sex: Female
  Weight: 75 kg

DRUGS (10)
  1. LIPITOR [Suspect]
     Indication: HYPERLIPIDAEMIA
     Dosage: 5 MG (1 IN 1 D), ORAL
     Route: 048
     Dates: start: 20030717, end: 20041019
  2. DIGOXIN [Suspect]
     Indication: ILL-DEFINED DISORDER
     Dosage: 0.125 MG (0.125 MG, 1 IN 1 D), ORAL
     Route: 048
     Dates: start: 20041001, end: 20041026
  3. ALLOPURINOL [Suspect]
     Indication: HYPERURICAEMIA
     Dosage: 100 MG (100 MG , 1 IN 1 D), ORAL
     Route: 048
     Dates: start: 20031101, end: 20041019
  4. FUROSEMIDE [Suspect]
     Indication: ILL-DEFINED DISORDER
     Dosage: 20 MG (20 MG , 1 IN 1D), ORAL
     Route: 048
     Dates: end: 20041026
  5. INDAPAMIDE [Suspect]
     Indication: OEDEMA
     Dosage: (1 IN 1 D), ORAL
     Route: 048
     Dates: start: 20030515, end: 20041019
  6. METFORMIN HCL [Suspect]
     Indication: DIABETES MELLITUS
     Dosage: 750 MG (250 MG, 3 IN 1 D), ORAL
     Route: 048
     Dates: start: 20041019, end: 20041117
  7. THIAMIDE HYDROCHLORIDE (THIAMIDE HYDROCHLORIDE) [Concomitant]
  8. INSULIN HUMAN (INSULIN HUMAN) [Concomitant]
  9. ASPIRIN [Concomitant]
  10. AMLODIPINE BESIALTE        (AMLODIPINE BESILATE0 [Concomitant]

REACTIONS (31)
  - ANGINA PECTORIS [None]
  - ATRIOVENTRICULAR BLOCK COMPLETE [None]
  - BACTERIA URINE IDENTIFIED [None]
  - BLOOD GLUCOSE INCREASED [None]
  - BLOOD POTASSIUM INCREASED [None]
  - CHEST DISCOMFORT [None]
  - CORONARY ARTERY DISEASE [None]
  - DEHYDRATION [None]
  - DIABETIC NEPHROPATHY [None]
  - DYSPNOEA [None]
  - ELECTROCARDIOGRAM ABNORMAL [None]
  - FEELING COLD [None]
  - GASTROINTESTINAL DISORDER [None]
  - HEADACHE [None]
  - HYPERHIDROSIS [None]
  - HYPERURICAEMIA [None]
  - INSOMNIA [None]
  - KLEBSIELLA INFECTION [None]
  - MALAISE [None]
  - MUSCLE SPASMS [None]
  - MYALGIA [None]
  - NASOPHARYNGITIS [None]
  - NAUSEA [None]
  - OEDEMA [None]
  - OEDEMA PERIPHERAL [None]
  - PALPITATIONS [None]
  - PROTEINURIA [None]
  - RENAL FAILURE ACUTE [None]
  - RHABDOMYOLYSIS [None]
  - THERAPEUTIC AGENT TOXICITY [None]
  - VOMITING [None]
